FAERS Safety Report 8395896-5 (Version None)
Quarter: 2012Q1

REPORT INFORMATION
  Report Type: 
  Country: None (occurrence: None)
  Receive Date: 20120323
  Receipt Date: 20110330
  Transmission Date: 20120608
  Serious: Yes (Hospitalization)
  Sender: FDA-Public Use
  Company Number: 163-21880-11033623

PATIENT
  Age: 65 Year
  Sex: Female
  Weight: 54.4316 kg

DRUGS (4)
  1. REVLIMID [Suspect]
     Indication: MULTIPLE MYELOMA
     Dosage: 25 MG, 21 DAYS OUT OF 28, PO
     Route: 048
     Dates: start: 20110201, end: 20110301
  2. ASPIRIN [Concomitant]
  3. XANAX [Concomitant]
  4. MULTIVITAMIN [Concomitant]

REACTIONS (3)
  - ANAEMIA [None]
  - SYNCOPE [None]
  - DIZZINESS [None]
